FAERS Safety Report 8050350 (Version 7)
Quarter: 2013Q4

REPORT INFORMATION
  Report Type: Spontaneous
  Country: CA (occurrence: CA)
  Receive Date: 20110722
  Receipt Date: 20131025
  Transmission Date: 20140711
  Serious: Yes (Hospitalization, Disabling, Other)
  Sender: FDA-Public Use
  Company Number: CA-ROCHE-GNE317386

PATIENT
  Age: 57 Year
  Sex: Female

DRUGS (7)
  1. XOLAIR [Suspect]
     Indication: ASTHMA
     Dosage: 150 MG, Q4W
     Route: 058
     Dates: start: 20050613
  2. XOLAIR [Suspect]
     Route: 058
     Dates: start: 20050706
  3. XOLAIR [Suspect]
     Route: 065
     Dates: start: 20120703
  4. PREDNISONE [Concomitant]
  5. ADVAIR [Concomitant]
  6. SPIRIVA [Concomitant]
  7. CORTISONE [Concomitant]

REACTIONS (14)
  - Breast cancer stage II [Not Recovered/Not Resolved]
  - Sinusitis [Recovering/Resolving]
  - Respiratory syncytial virus infection [Not Recovered/Not Resolved]
  - Pyrexia [Recovered/Resolved]
  - Cyst [Unknown]
  - Fatigue [Not Recovered/Not Resolved]
  - Asthma [Unknown]
  - Neutrophil count decreased [Unknown]
  - Feeling abnormal [Unknown]
  - Diarrhoea [Unknown]
  - Vomiting [Unknown]
  - Malaise [Unknown]
  - Rhinorrhoea [Unknown]
  - Oropharyngeal pain [Unknown]
